FAERS Safety Report 19292990 (Version 1)
Quarter: 2021Q2

REPORT INFORMATION
  Report Type: Spontaneous
  Country: US (occurrence: US)
  Receive Date: 20210524
  Receipt Date: 20210524
  Transmission Date: 20210717
  Serious: No
  Sender: FDA-Public Use
  Company Number: US-SA-2021SA168922

PATIENT
  Age: 32 Year
  Sex: Male

DRUGS (2)
  1. CLARITINE [Concomitant]
     Active Substance: LORATADINE
  2. DUPIXENT [Suspect]
     Active Substance: DUPILUMAB
     Indication: DERMATITIS ATOPIC
     Route: 058
     Dates: start: 20210114

REACTIONS (1)
  - Dry eye [Unknown]
